FAERS Safety Report 16235178 (Version 1)
Quarter: 2019Q2

REPORT INFORMATION
  Report Type: Report from Study
  Country: PL (occurrence: PL)
  Receive Date: 20190424
  Receipt Date: 20190424
  Transmission Date: 20190711
  Serious: Yes (Other)
  Sender: FDA-Public Use
  Company Number: PHHY2019PL038738

PATIENT
  Sex: Female

DRUGS (1)
  1. TASIGNA [Suspect]
     Active Substance: NILOTINIB
     Indication: LEUKAEMIA
     Dosage: 400 MG, BID
     Route: 065
     Dates: start: 2011

REACTIONS (2)
  - Dyspnoea [Recovering/Resolving]
  - Angina pectoris [Unknown]
